FAERS Safety Report 8557448-3 (Version None)
Quarter: 2012Q3

REPORT INFORMATION
  Report Type: 
  Country: None (occurrence: None)
  Receive Date: 20120801
  Receipt Date: 20120723
  Transmission Date: 20120928
  Serious: Yes (Other)
  Sender: FDA-Public Use
  Company Number: FR-ELI_LILLY_AND_COMPANY-FR201207006598

PATIENT
  Sex: Female

DRUGS (3)
  1. CISPLATIN [Concomitant]
  2. BEVACIZUMAB [Concomitant]
  3. ALIMTA [Suspect]
     Indication: ADENOCARCINOMA
     Dosage: UNK
     Route: 042
     Dates: start: 20111017, end: 20120502

REACTIONS (1)
  - PARAESTHESIA [None]
